FAERS Safety Report 15094582 (Version 1)
Quarter: 2018Q2

REPORT INFORMATION
  Report Type: Spontaneous
  Country: US (occurrence: US)
  Receive Date: 20180630
  Receipt Date: 20180630
  Transmission Date: 20180711
  Serious: No
  Sender: FDA-Public Use
  Company Number: US-PRINSTON PHARMACEUTICAL INC.-2018PRN00121

PATIENT
  Age: 86 Year
  Sex: Female
  Weight: 40.82 kg

DRUGS (3)
  1. VALSARTAN. [Suspect]
     Active Substance: VALSARTAN
     Dosage: 40 MG, 1X/DAY AT NIGHT
     Route: 048
     Dates: start: 20180307, end: 20180308
  2. VALSARTAN. [Suspect]
     Active Substance: VALSARTAN
     Indication: HYPERTENSION
     Dosage: 160 MG, 1X/DAY AT NIGHT
     Route: 048
     Dates: start: 20180312
  3. VALSARTAN. [Suspect]
     Active Substance: VALSARTAN
     Dosage: 80 MG, 1X/DAY AT NIGHT
     Route: 048
     Dates: start: 20180309, end: 201803

REACTIONS (2)
  - Visual impairment [Not Recovered/Not Resolved]
  - Drug ineffective [Not Recovered/Not Resolved]

NARRATIVE: CASE EVENT DATE: 201803
